FAERS Safety Report 12384532 (Version 1)
Quarter: 2016Q2

REPORT INFORMATION
  Report Type: Spontaneous
  Country: US (occurrence: None)
  Receive Date: 20160518
  Receipt Date: 20160518
  Transmission Date: 20160815
  Serious: No
  Sender: FDA-Public Use
  Company Number: None

PATIENT
  Age: 62 Year
  Sex: Female

DRUGS (13)
  1. AMLODIPINE [Concomitant]
     Active Substance: AMLODIPINE BESYLATE
  2. FUROSEMIDE. [Concomitant]
     Active Substance: FUROSEMIDE
  3. LEVOTHYROXIN [Concomitant]
     Active Substance: LEVOTHYROXINE
  4. LETROZOLE. [Concomitant]
     Active Substance: LETROZOLE
  5. ALLOPURINOL. [Concomitant]
     Active Substance: ALLOPURINOL
  6. ATENOLOL. [Concomitant]
     Active Substance: ATENOLOL
  7. HYDROXYCHLOR [Concomitant]
     Active Substance: HYDROXYCHLOROQUINE
  8. BETOPTIC-S [Concomitant]
     Active Substance: BETAXOLOL HYDROCHLORIDE
  9. ALPHAGAN P SOLN [Concomitant]
  10. METFORMIN [Concomitant]
     Active Substance: METFORMIN HYDROCHLORIDE
  11. IBRANCE [Suspect]
     Active Substance: PALBOCICLIB
     Indication: BREAST CANCER
     Dosage: 75MG 21 DAYS ON 7 DAYS OFF QD PO
     Route: 048
     Dates: start: 201505
  12. FERROUS SULF [Concomitant]
  13. LOSARTAN. [Concomitant]
     Active Substance: LOSARTAN

REACTIONS (2)
  - Pain [None]
  - Fatigue [None]

NARRATIVE: CASE EVENT DATE: 201505
